FAERS Safety Report 17917947 (Version 1)
Quarter: 2020Q2

REPORT INFORMATION
  Report Type: Other
  Country: US (occurrence: KR)
  Receive Date: 20200619
  Receipt Date: 20200619
  Transmission Date: 20200714
  Serious: Yes (Life-Threatening, Hospitalization, Other)
  Sender: FDA-Public Use
  Company Number: KR-BRECKENRIDGE PHARMACEUTICAL, INC.-2086282

PATIENT
  Age: 26 Year
  Sex: Male

DRUGS (1)
  1. DUTASTERIDE. [Suspect]
     Active Substance: DUTASTERIDE
     Indication: ALOPECIA

REACTIONS (6)
  - Diplopia [None]
  - Headache [None]
  - Intracranial pressure increased [None]
  - Papilloedema [None]
  - Cerebral venous thrombosis [None]
  - Retinal haemorrhage [None]
